FAERS Safety Report 26063432 (Version 2)
Quarter: 2025Q4

REPORT INFORMATION
  Report Type: Spontaneous
  Country: US (occurrence: US)
  Receive Date: 20251119
  Receipt Date: 20251210
  Transmission Date: 20260117
  Serious: No
  Sender: BRISTOL-MYERS SQUIBB COMPANY
  Company Number: US-BRISTOL-MYERS SQUIBB COMPANY-2025-156565

PATIENT
  Age: 3 Year
  Sex: Female
  Weight: 15.2 kg

DRUGS (1)
  1. THALOMID [Suspect]
     Active Substance: THALIDOMIDE
     Indication: Brain neoplasm malignant
     Dosage: OPEN 1 CAPSULE (50MG) AND MIX WITH 5ML WATER AND GIVE VIA G-TUBE EVERY MORNING ON AN EMPTY STOMACH
     Route: 048

REACTIONS (2)
  - Urine odour abnormal [Unknown]
  - Off label use [Unknown]
